FAERS Safety Report 6451176-6 (Version None)
Quarter: 2009Q4

REPORT INFORMATION
  Report Type: 
  Country: None (occurrence: None)
  Receive Date: 20091123
  Receipt Date: 20091119
  Transmission Date: 20100525
  Serious: Yes (Death, Other)
  Sender: FDA-Public Use
  Company Number: FR-JNJFOC-20091105825

PATIENT
  Sex: Male
  Weight: 88 kg

DRUGS (4)
  1. HALDOL [Suspect]
     Indication: DRUG USE FOR UNKNOWN INDICATION
     Route: 041
     Dates: start: 20090801, end: 20090825
  2. FLAMMAZINE [Suspect]
     Indication: DRUG USE FOR UNKNOWN INDICATION
     Route: 003
     Dates: start: 20090801, end: 20090825
  3. ERYTHROCINE [Suspect]
     Indication: IMPAIRED GASTRIC EMPTYING
     Route: 042
     Dates: start: 20090801, end: 20090825
  4. ANTIBIOTICS UNSPECIFIED [Concomitant]
     Route: 065

REACTIONS (3)
  - AGRANULOCYTOSIS [None]
  - LEUKOCYTOSIS [None]
  - SEPTIC SHOCK [None]
